FAERS Safety Report 9825066 (Version 1)
Quarter: 2013Q4

REPORT INFORMATION
  Report Type: Spontaneous
  Country: FR (occurrence: None)
  Receive Date: 20131031
  Receipt Date: 20131031
  Transmission Date: 20140711
  Serious: No
  Sender: FDA-Public Use
  Company Number: 2013S1000006

PATIENT
  Sex: 0

DRUGS (5)
  1. KRYSTEXXA (PEGLOTICASE) (8 MG) [Suspect]
     Indication: PRODUCT USED FOR UNKNOWN INDICATION
     Dosage: ;Q14DAYS:IV
     Route: 042
     Dates: start: 20121126, end: 20121126
  2. DESLORATADINE [Concomitant]
  3. PARACETAMOL [Concomitant]
  4. METHYLPREDNISOLONE [Concomitant]
  5. COLCHICINE [Concomitant]

REACTIONS (1)
  - Therapeutic response decreased [None]
